FAERS Safety Report 8107467-6 (Version None)
Quarter: 2012Q1

REPORT INFORMATION
  Report Type: 
  Country: None (occurrence: None)
  Receive Date: 20120202
  Receipt Date: 20120127
  Transmission Date: 20120608
  Serious: Yes (Death, Hospitalization)
  Sender: FDA-Public Use
  Company Number: US-BRISTOL-MYERS SQUIBB COMPANY-12893491

PATIENT
  Age: 84 Year
  Sex: Female
  Weight: 45 kg

DRUGS (17)
  1. LORTAB [Concomitant]
     Dosage: 5-10MG Q4-6H
  2. PROTONIX [Concomitant]
  3. OYSTER SHELL CALCIUM [Concomitant]
  4. ERBITUX [Suspect]
     Indication: NON-SMALL CELL LUNG CANCER
     Dosage: 400MG/M2 WEEK DAY 1 COUSRSE:3 LAST DOSE:21FEB2005
     Route: 042
     Dates: start: 20041115
  5. ATIVAN [Concomitant]
     Route: 042
  6. MAXIPIME [Concomitant]
     Route: 042
  7. CANCIDAS [Concomitant]
     Route: 042
  8. MAGNESIUM OXIDE [Concomitant]
  9. LOVENOX [Concomitant]
     Route: 058
  10. TUSSIONEX [Concomitant]
     Dosage: 1DF=5
  11. VANCOMYCIN [Concomitant]
     Route: 042
  12. CARBOPLATIN [Suspect]
     Indication: NON-SMALL CELL LUNG CANCER
     Dosage: AUC 6.  COUSRSE:3 LAST DOSE:14FEB2005
     Route: 042
     Dates: start: 20041115
  13. POTASSIUM CHLORIDE [Concomitant]
  14. IMODIUM [Concomitant]
  15. TAXOL [Suspect]
     Indication: NON-SMALL CELL LUNG CANCER
     Dosage: 250MG/M2  COUSRSE:3 LAST DOSE:14FEB2005
     Route: 042
     Dates: start: 20041115
  16. AMBIEN [Concomitant]
  17. MULTI-VITAMIN [Concomitant]

REACTIONS (13)
  - HYPOXIA [None]
  - CONFUSIONAL STATE [None]
  - DYSPNOEA [None]
  - FATIGUE [None]
  - RADIATION PNEUMONITIS [None]
  - NEUTROPHIL COUNT DECREASED [None]
  - ANAEMIA [None]
  - HYPOXIC-ISCHAEMIC ENCEPHALOPATHY [None]
  - FEBRILE NEUTROPENIA [None]
  - NEOPLASM MALIGNANT [None]
  - HYPOMAGNESAEMIA [None]
  - ARRHYTHMIA [None]
  - TACHYCARDIA [None]
